FAERS Safety Report 8732238 (Version 3)
Quarter: 2012Q4

REPORT INFORMATION
  Report Type: 
  Country: US (occurrence: US)
  Receive Date: 20120820
  Receipt Date: 20121010
  Transmission Date: 20130627
  Serious: Yes (Other)
  Sender: FDA-Public Use
  Company Number: US-BAYER-2012-083972

PATIENT

DRUGS (1)
  1. GADAVIST [Suspect]

REACTIONS (1)
  - Anaphylactic reaction [Unknown]
